FAERS Safety Report 7388317 (Version 29)
Quarter: 2013Q4

REPORT INFORMATION
  Report Type: Spontaneous
  Country: US (occurrence: US)
  Receive Date: 20100514
  Receipt Date: 20131230
  Transmission Date: 20140711
  Serious: Yes (Death, Hospitalization, Other)
  Sender: FDA-Public Use
  Company Number: PHEH2010US03425

PATIENT
  Age: 85 Year
  Sex: Female

DRUGS (50)
  1. AREDIA [Suspect]
     Indication: PLASMA CELL MYELOMA
     Dosage: 90 MG, QMO
     Route: 042
     Dates: start: 2001, end: 200708
  2. ZOMETA [Suspect]
     Dosage: 4 MG, QMO
     Route: 042
     Dates: start: 2001, end: 200708
  3. PROCRIT [Concomitant]
     Dosage: 40000 U,
  4. MEGACE [Concomitant]
  5. COLESTID [Concomitant]
  6. VELCADE [Concomitant]
  7. REGLAN [Concomitant]
  8. ALAVERT [Concomitant]
  9. STEROIDS NOS [Concomitant]
  10. CARDIZEM [Concomitant]
  11. ACTOS [Concomitant]
  12. AUGMENTINE [Concomitant]
  13. VEGETAMIN B [Concomitant]
  14. ASPIRIN ^BAYER^ [Concomitant]
  15. ZOCOR ^DIECKMANN^ [Concomitant]
  16. INSULIN [Concomitant]
  17. DARVOCET-N [Concomitant]
  18. ACCUPRIL [Concomitant]
     Dosage: 40 MG,
  19. HEPARIN SODIUM [Concomitant]
  20. STARLIX [Concomitant]
  21. OSCAL [Concomitant]
     Dosage: 1 DF, QD
  22. ECOTRIN [Concomitant]
     Dosage: 1 DF, QD
  23. VITAMIN E [Concomitant]
     Dosage: 1 DF, QD
  24. MELPHALAN [Concomitant]
  25. PREDNISONE [Concomitant]
  26. VICODIN [Concomitant]
  27. LEXAPRO [Concomitant]
     Dosage: 10 MG, QD
     Route: 048
  28. DECADRON [Concomitant]
     Dosage: 20 MG, QW
  29. WARFARIN [Concomitant]
     Route: 048
  30. LISINOPRIL [Concomitant]
     Dosage: 10 MG, QD
     Route: 048
  31. GLYCOLAX [Concomitant]
  32. NEXIUM [Concomitant]
     Dosage: 40 MG, QD
  33. LANTUS [Concomitant]
     Dosage: 40 U, QD
  34. ARANESP [Concomitant]
  35. AMLODIPINE [Concomitant]
     Dosage: 5 MG, QD
     Route: 048
  36. ESOMEPRAZOLE MAGNESIUM [Concomitant]
     Dosage: 40 MG, QD
     Route: 048
  37. AVANDIA [Concomitant]
     Dosage: 10 MG, BID
  38. CHEMOTHERAPEUTICS [Concomitant]
  39. HUMALOG [Concomitant]
  40. KEPPRA [Concomitant]
  41. NORCO [Concomitant]
  42. ATIVAN [Concomitant]
  43. LEVETIRACETAM [Concomitant]
  44. TYLENOL [Concomitant]
  45. TIMENTIN [Concomitant]
  46. ACETAMINOPHEN [Concomitant]
  47. CARAFATE [Concomitant]
  48. METOPROLOL [Concomitant]
  49. ISOSORB MONO [Concomitant]
  50. NORVASC [Concomitant]

REACTIONS (131)
  - Death [Fatal]
  - Malaise [Unknown]
  - Chest pain [Unknown]
  - Dyspnoea [Unknown]
  - Osteonecrosis of jaw [Unknown]
  - Injury [Unknown]
  - Disability [Unknown]
  - Pain [Unknown]
  - Anxiety [Unknown]
  - Anhedonia [Unknown]
  - Oroantral fistula [Unknown]
  - Exposed bone in jaw [Unknown]
  - Plasma cell myeloma [Unknown]
  - Bone disorder [Unknown]
  - Renal impairment [Unknown]
  - Osteoporosis [Unknown]
  - Proteinuria [Unknown]
  - Bone marrow failure [Unknown]
  - Osteolysis [Unknown]
  - Pathological fracture [Unknown]
  - Anaemia [Recovered/Resolved]
  - Pneumonia [Unknown]
  - Cardiac disorder [Unknown]
  - Diabetes mellitus [Unknown]
  - Neuralgia [Unknown]
  - Fractured sacrum [Unknown]
  - Arteriosclerosis [Unknown]
  - Coronary artery disease [Unknown]
  - Mental status changes [Unknown]
  - Syncope [Unknown]
  - Sinus disorder [Unknown]
  - Hypogammaglobulinaemia [Unknown]
  - Osteoarthritis [Unknown]
  - Bone neoplasm [Unknown]
  - Pancytopenia [Unknown]
  - Bronchitis [Unknown]
  - Convulsion [Unknown]
  - Atelectasis [Unknown]
  - Hiatus hernia [Unknown]
  - Aortic calcification [Unknown]
  - Colitis [Unknown]
  - Infection [Unknown]
  - Pericardial effusion [Unknown]
  - Cholecystitis [Unknown]
  - Intervertebral disc degeneration [Unknown]
  - Intervertebral disc space narrowing [Unknown]
  - Intervertebral disc protrusion [Unknown]
  - Spinal column stenosis [Unknown]
  - Back pain [Unknown]
  - Hypertension [Unknown]
  - Chronic obstructive pulmonary disease [Unknown]
  - Gastrointestinal haemorrhage [Unknown]
  - Gastrointestinal pain [Unknown]
  - Hypoventilation [Unknown]
  - Respiratory failure [Unknown]
  - Renal failure chronic [Unknown]
  - Goitre [Unknown]
  - Diabetic retinopathy [Unknown]
  - Neuropathy peripheral [Unknown]
  - Carotid artery stenosis [Unknown]
  - Hyperlipidaemia [Unknown]
  - Respiratory tract congestion [Unknown]
  - Acrochordon [Unknown]
  - Swelling [Unknown]
  - Deep vein thrombosis [Unknown]
  - Chondrocalcinosis [Unknown]
  - Mastication disorder [Unknown]
  - Tooth loss [Unknown]
  - Cataract [Unknown]
  - Hair follicle tumour benign [Unknown]
  - Dermoid cyst [Unknown]
  - Gastritis [Unknown]
  - Second primary malignancy [Unknown]
  - Exostosis [Unknown]
  - Osteopenia [Unknown]
  - Lymphoedema [Unknown]
  - Cardiomegaly [Unknown]
  - Urinary tract infection [Unknown]
  - Cerebral atrophy [Unknown]
  - Cerebral ventricle dilatation [Unknown]
  - Cerebral ischaemia [Unknown]
  - Aortic dilatation [Unknown]
  - Aneurysm [Unknown]
  - Diastolic dysfunction [Unknown]
  - Mitral valve incompetence [Unknown]
  - Tricuspid valve incompetence [Unknown]
  - Pleural effusion [Unknown]
  - Haemoglobin decreased [Unknown]
  - Erosive oesophagitis [Unknown]
  - Cardiac failure congestive [Unknown]
  - Lung disorder [Unknown]
  - Bone cancer [Unknown]
  - Escherichia infection [Unknown]
  - Metastasis [Unknown]
  - Pulmonary mass [Unknown]
  - Hypoglycaemia [Unknown]
  - Pulmonary granuloma [Unknown]
  - Pulmonary fibrosis [Unknown]
  - Staphylococcal infection [Unknown]
  - Oesophageal ulcer [Unknown]
  - Encephalopathy [Unknown]
  - Lethargy [Unknown]
  - Restlessness [Unknown]
  - Hypercalcaemia of malignancy [Unknown]
  - Fall [Unknown]
  - Confusional state [Unknown]
  - Ecchymosis [Unknown]
  - Dehydration [Unknown]
  - Skin fibrosis [Unknown]
  - Impaired healing [Unknown]
  - Abscess limb [Unknown]
  - Multiple fractures [Unknown]
  - Vertebral foraminal stenosis [Unknown]
  - Haematoma [Unknown]
  - Dizziness [Unknown]
  - Skin ulcer [Unknown]
  - Oropharyngeal pain [Unknown]
  - Decreased appetite [Unknown]
  - Hyperparathyroidism secondary [Unknown]
  - Fractured coccyx [Unknown]
  - Nephritis [Unknown]
  - Nephropathy [Unknown]
  - Bladder dilatation [Unknown]
  - Spinal osteoarthritis [Unknown]
  - Depressed mood [Unknown]
  - Pharyngeal oedema [Unknown]
  - Cushingoid [Unknown]
  - Lipohypertrophy [Unknown]
  - Wheezing [Unknown]
  - Muscular weakness [Unknown]
  - Erythema [Unknown]
